FAERS Safety Report 9238142 (Version 1)
Quarter: 2013Q2

REPORT INFORMATION
  Report Type: Spontaneous
  Country: GB (occurrence: GB)
  Receive Date: 20130418
  Receipt Date: 20130418
  Transmission Date: 20140414
  Serious: Yes (Other)
  Sender: FDA-Public Use
  Company Number: PHFR2013GB001405

PATIENT
  Age: 18 Year
  Sex: Male

DRUGS (2)
  1. CLOZARIL [Suspect]
     Indication: SCHIZOPHRENIA
     Dosage: 12.5 MG, QD
     Route: 048
     Dates: start: 20130225
  2. CLOZARIL [Suspect]
     Dosage: 25 MG, BID
     Route: 048

REACTIONS (3)
  - Bundle branch block right [Unknown]
  - Sinus tachycardia [Unknown]
  - Heart rate increased [Unknown]
